FAERS Safety Report 12374730 (Version 1)
Quarter: 2016Q2

REPORT INFORMATION
  Report Type: Spontaneous
  Country: US (occurrence: None)
  Receive Date: 20160516
  Receipt Date: 20160516
  Transmission Date: 20160815
  Serious: Yes (Other)
  Sender: FDA-Public Use
  Company Number: None

PATIENT
  Age: 67 Year
  Sex: Female

DRUGS (9)
  1. BREO ELLIPTA [Concomitant]
     Active Substance: FLUTICASONE FUROATE\VILANTEROL TRIFENATATE
  2. VAGIFEM [Concomitant]
     Active Substance: ESTRADIOL
  3. SCHIFF JOINT HEALTH [Concomitant]
  4. DYMISTA [Suspect]
     Active Substance: AZELASTINE HYDROCHLORIDE\FLUTICASONE PROPIONATE
     Indication: ASTHMA
     Route: 055
     Dates: start: 20151231, end: 20160513
  5. MULTI VITAMINS [Concomitant]
  6. VITAMIN D [Concomitant]
     Active Substance: CHOLECALCIFEROL
  7. SIMVASTATIN. [Concomitant]
     Active Substance: SIMVASTATIN
  8. KRILL OIL [Concomitant]
     Active Substance: DIETARY SUPPLEMENT
  9. CHIA SEED [Concomitant]

REACTIONS (5)
  - Anosmia [None]
  - Ageusia [None]
  - Vertigo positional [None]
  - Dizziness [None]
  - Therapy cessation [None]

NARRATIVE: CASE EVENT DATE: 20160111
